FAERS Safety Report 5232260-1 (Version None)
Quarter: 2007Q1

REPORT INFORMATION
  Report Type: 
  Country: None (occurrence: None)
  Receive Date: 20061204
  Receipt Date: 20060824
  Transmission Date: 20070707
  Serious: No
  Sender: FDA-Public Use
  Company Number: 2006-BP-08488BP

PATIENT
  Age: 85 Year
  Sex: Female

DRUGS (8)
  1. SPIRIVA [Suspect]
     Indication: CHRONIC OBSTRUCTIVE PULMONARY DISEASE
     Dosage: 18 MCG (18 MCG,1 IN 1 D),IH
     Dates: start: 20051201
  2. THYROID MEDICATION (NOT SPECIFIED) (ALL OTHER THERAPEUTIC PRODUCTS) [Concomitant]
  3. HIGH BLOOD PRESSURE MEDICATION (SPECIFICS NOT REPORTED) (ALL OTHER THE [Concomitant]
  4. SPIRONOLACT (SPIRONOLACTONE) [Concomitant]
  5. SYNTHROID [Concomitant]
  6. ZOLOFT [Concomitant]
  7. COMBIVENT (COMBIVENT /01261001/) [Concomitant]
  8. ASPIRIN [Concomitant]

REACTIONS (4)
  - ARTHRALGIA [None]
  - DRY MOUTH [None]
  - MYALGIA [None]
  - VISION BLURRED [None]
